FAERS Safety Report 8894702 (Version 1)
Quarter: 2012Q4

REPORT INFORMATION
  Report Type: 
  Country: SE (occurrence: SE)
  Receive Date: 20121108
  Receipt Date: 20121108
  Transmission Date: 20130627
  Serious: Yes (Hospitalization)
  Sender: FDA-Public Use
  Company Number: SE-PFIZER INC-2012271174

PATIENT
  Age: 57 Year
  Sex: Female
  Weight: 112 kg

DRUGS (7)
  1. GENOTROPIN [Suspect]
     Indication: GROWTH HORMONE DEFICIENCY
     Dosage: 0.17 mg, 1x/day, 7 injections/week
     Route: 058
     Dates: start: 20090219
  2. LEVAXIN [Concomitant]
     Indication: THYROID DISORDER
     Dosage: UNK
     Dates: start: 19940101
  3. LEVAXIN [Concomitant]
     Indication: PRIMARY HYPOTHYROIDISM
  4. ESTRADIOL/NORETHISTERONE ACETATE [Concomitant]
     Indication: OVARIAN FAILURE
     Dosage: UNK
     Dates: start: 19940101
  5. MINRIN [Concomitant]
     Indication: ADH DECREASED
     Dosage: UNK
     Dates: start: 20080108
  6. HYDROCORTISONE [Concomitant]
     Indication: ACTH DECREASED
     Dosage: UNK
     Dates: start: 2008
  7. BISOPROLOL [Concomitant]
     Indication: HYPERTENSION
     Dosage: UNK
     Dates: start: 19980101

REACTIONS (1)
  - Muscle disorder [Unknown]
